FAERS Safety Report 10993075 (Version 1)
Quarter: 2015Q2

REPORT INFORMATION
  Report Type: Spontaneous
  Country: US (occurrence: US)
  Receive Date: 20150407
  Receipt Date: 20150407
  Transmission Date: 20150821
  Serious: No
  Sender: FDA-Public Use
  Company Number: US-009507513-1503USA013205

PATIENT
  Age: 64 Year
  Sex: Female

DRUGS (1)
  1. VYTORIN [Suspect]
     Active Substance: EZETIMIBE\SIMVASTATIN
     Indication: HYPERTENSION
     Dosage: 1 DF, HS
     Route: 048
     Dates: start: 2002, end: 201503

REACTIONS (2)
  - Feeling hot [Unknown]
  - Drug dose omission [Unknown]

NARRATIVE: CASE EVENT DATE: 201503
